FAERS Safety Report 16987190 (Version 1)
Quarter: 2019Q4

REPORT INFORMATION
  Report Type: Report from Study
  Country: None (occurrence: US)
  Receive Date: 20191102
  Receipt Date: 20191102
  Transmission Date: 20200122
  Serious: Yes (Other)
  Sender: FDA-Public Use
  Company Number: US-ABBVIE-19K-163-2941276-00

PATIENT
  Sex: Female

DRUGS (1)
  1. HUMIRA [Suspect]
     Active Substance: ADALIMUMAB
     Indication: CROHN^S DISEASE
     Route: 058

REACTIONS (8)
  - Pneumothorax [Unknown]
  - Arthropathy [Unknown]
  - Anaesthetic complication pulmonary [Unknown]
  - Pain [Unknown]
  - Neoplasm malignant [Unknown]
  - Hysterectomy [Unknown]
  - Malaise [Unknown]
  - Osteoarthritis [Unknown]
